FAERS Safety Report 7067447-9 (Version None)
Quarter: 2010Q4

REPORT INFORMATION
  Report Type: 
  Country: None (occurrence: None)
  Receive Date: 20101028
  Receipt Date: 20101019
  Transmission Date: 20110411
  Serious: Yes (Hospitalization)
  Sender: FDA-Public Use
  Company Number: DK-BAXTER-2010BH026089

PATIENT
  Age: 80 Year
  Sex: Female

DRUGS (2)
  1. GAMMAGARD LIQUID [Suspect]
     Indication: HYPOGAMMAGLOBULINAEMIA
     Dosage: 100 MG/ML
     Route: 042
  2. GAMMAGARD LIQUID [Suspect]
     Indication: INFECTION
     Dosage: 100 MG/ML
     Route: 042

REACTIONS (2)
  - CHILLS [None]
  - MALAISE [None]
